FAERS Safety Report 15405752 (Version 1)
Quarter: 2018Q3

REPORT INFORMATION
  Report Type: Report from Study
  Country: NL (occurrence: NL)
  Receive Date: 20180920
  Receipt Date: 20180920
  Transmission Date: 20181010
  Serious: Yes (Hospitalization)
  Sender: FDA-Public Use
  Company Number: NL-TEVA-2018-NL-955115

PATIENT
  Sex: Female

DRUGS (7)
  1. COPAXONE [Suspect]
     Active Substance: GLATIRAMER ACETATE
     Indication: MULTIPLE SCLEROSIS
     Route: 058
     Dates: start: 20150420
  2. PARACETAMOL 500 MG [Concomitant]
     Active Substance: ACETAMINOPHEN
     Dosage: IF NECESSARY
  3. FEXOFENADINE 180 MG [Concomitant]
     Active Substance: FEXOFENADINE\FEXOFENADINE HYDROCHLORIDE
     Dosage: 1 X DAILY 1
  4. PANTOPRAZOL 20 [Concomitant]
     Dosage: 1 DOSAGE FORMS DAILY; 1 DF = 1 TABLET
  5. BACLOFEN 10 MG [Concomitant]
     Active Substance: BACLOFEN
     Dosage: 4 X DAILY 1
  6. VIT D 5600 IE [Concomitant]
  7. FLUTICASON [Concomitant]
     Active Substance: FLUTICASONE
     Dosage: AVANTS NOSE SPRAY

REACTIONS (4)
  - Uhthoff^s phenomenon [Recovering/Resolving]
  - Dysphagia [Recovering/Resolving]
  - Cystitis noninfective [Recovering/Resolving]
  - Speech disorder [Recovering/Resolving]

NARRATIVE: CASE EVENT DATE: 2018
